FAERS Safety Report 21271169 (Version 2)
Quarter: 2022Q3

REPORT INFORMATION
  Report Type: Spontaneous
  Country: ES (occurrence: ES)
  Receive Date: 20220830
  Receipt Date: 20220906
  Transmission Date: 20221026
  Serious: Yes (Hospitalization, Other)
  Sender: FDA-Public Use
  Company Number: None

PATIENT
  Age: 58 Year
  Sex: Male

DRUGS (2)
  1. VEKLURY [Suspect]
     Active Substance: REMDESIVIR
     Indication: COVID-19 pneumonia
     Dosage: 29 MG, ONCE; 200 MILLIGRAMS ONE TIME
     Route: 042
     Dates: start: 20200909, end: 20200909
  2. SULPIRIDE [Suspect]
     Active Substance: SULPIRIDE
     Indication: Agitation
     Dosage: 1 DOSAGE FORM, QD
     Route: 048
     Dates: start: 20200908, end: 20200915

REACTIONS (1)
  - Hepatocellular injury [Recovered/Resolved]

NARRATIVE: CASE EVENT DATE: 20200911
